FAERS Safety Report 23212443 (Version 1)
Quarter: 2023Q4

REPORT INFORMATION
  Report Type: Spontaneous
  Country: FR (occurrence: FR)
  Receive Date: 20231121
  Receipt Date: 20231121
  Transmission Date: 20240110
  Serious: Yes (Other)
  Sender: FDA-Public Use
  Company Number: None

PATIENT
  Age: 44 Year
  Sex: Male
  Weight: 114 kg

DRUGS (17)
  1. OXALIPLATIN [Suspect]
     Active Substance: OXALIPLATIN
     Indication: Rectal adenocarcinoma
     Dosage: THERAPY START DATE-24-JUL-2023
     Dates: end: 20230724
  2. OXALIPLATIN [Suspect]
     Active Substance: OXALIPLATIN
     Dates: start: 20220329, end: 20220329
  3. OXALIPLATIN [Suspect]
     Active Substance: OXALIPLATIN
     Dates: start: 20220308, end: 20220308
  4. OXALIPLATIN [Suspect]
     Active Substance: OXALIPLATIN
     Dates: start: 20230807, end: 20230807
  5. OXALIPLATIN [Suspect]
     Active Substance: OXALIPLATIN
     Dates: start: 20220215, end: 20220215
  6. OXALIPLATIN [Suspect]
     Active Substance: OXALIPLATIN
     Dates: start: 20220419, end: 20220419
  7. FLUOROURACIL [Concomitant]
     Active Substance: FLUOROURACIL
     Indication: Rectal adenocarcinoma
     Dates: start: 20230711, end: 20230711
  8. FLUOROURACIL [Concomitant]
     Active Substance: FLUOROURACIL
     Dates: start: 20230724, end: 20230724
  9. FLUOROURACIL [Concomitant]
     Active Substance: FLUOROURACIL
     Dates: start: 20230906, end: 20230906
  10. FLUOROURACIL [Concomitant]
     Active Substance: FLUOROURACIL
     Dates: start: 20230807, end: 20230807
  11. AVASTIN [Concomitant]
     Active Substance: BEVACIZUMAB
     Indication: Rectal adenocarcinoma
     Dates: start: 20230711, end: 20230711
  12. LOXEN L P 50 mg, extended-release capsule [Concomitant]
     Indication: Product used for unknown indication
  13. LEUCOVORIN [Concomitant]
     Active Substance: LEUCOVORIN\LEUCOVORIN CALCIUM
     Indication: Rectal adenocarcinoma
     Dates: start: 20230724, end: 20230724
  14. LEUCOVORIN [Concomitant]
     Active Substance: LEUCOVORIN\LEUCOVORIN CALCIUM
     Dates: start: 20230906, end: 20230906
  15. LEUCOVORIN [Concomitant]
     Active Substance: LEUCOVORIN\LEUCOVORIN CALCIUM
     Dates: start: 20230807, end: 20230807
  16. LEUCOVORIN [Concomitant]
     Active Substance: LEUCOVORIN\LEUCOVORIN CALCIUM
     Dates: start: 20230711, end: 20230711
  17. SERTRALINE HYDROCHLORIDE [Concomitant]
     Active Substance: SERTRALINE HYDROCHLORIDE
     Indication: Product used for unknown indication

REACTIONS (1)
  - Anaphylactoid reaction [Recovered/Resolved]

NARRATIVE: CASE EVENT DATE: 20220215
